FAERS Safety Report 11679993 (Version 3)
Quarter: 2015Q4

REPORT INFORMATION
  Report Type: Spontaneous
  Country: US (occurrence: US)
  Receive Date: 20151027
  Receipt Date: 20151110
  Transmission Date: 20160304
  Serious: No
  Sender: FDA-Public Use
  Company Number: US-ELI_LILLY_AND_COMPANY-US201006001609

PATIENT
  Sex: Female

DRUGS (4)
  1. FORTEO [Suspect]
     Active Substance: TERIPARATIDE
     Indication: OSTEOPOROSIS
     Dosage: UNK UNK, UNKNOWN
     Route: 065
  2. FORTEO [Suspect]
     Active Substance: TERIPARATIDE
     Dosage: UNK UNK, UNKNOWN
  3. FORTEO [Suspect]
     Active Substance: TERIPARATIDE
     Dosage: UNK UNK, UNKNOWN
     Route: 065
  4. FORTEO [Suspect]
     Active Substance: TERIPARATIDE
     Dosage: UNK UNK, UNKNOWN
     Route: 065

REACTIONS (10)
  - Toothache [Not Recovered/Not Resolved]
  - Contusion [Unknown]
  - Mood swings [Unknown]
  - Localised infection [Unknown]
  - Dizziness [Unknown]
  - Injection site bruising [Not Recovered/Not Resolved]
  - Injection site mass [Unknown]
  - Headache [Unknown]
  - Upper extremity mass [Unknown]
  - Cellulitis [Unknown]
